FAERS Safety Report 12232604 (Version 2)
Quarter: 2016Q2

REPORT INFORMATION
  Report Type: Report from Study
  Country: FR (occurrence: FR)
  Receive Date: 20160401
  Receipt Date: 20160407
  Transmission Date: 20160815
  Serious: Yes (Death, Hospitalization, Other)
  Sender: FDA-Public Use
  Company Number: FR-SEATTLE GENETICS-2016SGN00478

PATIENT

DRUGS (2)
  1. BRENTUXIMAB VEDOTIN [Suspect]
     Active Substance: BRENTUXIMAB VEDOTIN
     Dosage: 130 MG, UNK
     Route: 042
     Dates: start: 20150116, end: 20150624
  2. BRENTUXIMAB VEDOTIN [Suspect]
     Active Substance: BRENTUXIMAB VEDOTIN
     Indication: HODGKIN^S DISEASE
     Dosage: 118 MG, UNK
     Route: 042
     Dates: start: 20150310, end: 20150624

REACTIONS (14)
  - Cardiac tamponade [Recovered/Resolved]
  - Weight decreased [Not Recovered/Not Resolved]
  - Colon cancer [Fatal]
  - Metastases to liver [Unknown]
  - Pleural effusion [Recovered/Resolved]
  - Pericardial effusion [Recovered/Resolved]
  - Anaemia [Recovered/Resolved]
  - Pyrexia [Recovered/Resolved]
  - Infection [Recovered/Resolved]
  - Hodgkin^s disease [Unknown]
  - Drug ineffective [Unknown]
  - Hypothyroidism [Recovered/Resolved]
  - Pleuropericarditis [Recovered/Resolved]
  - Influenza like illness [Recovered/Resolved]

NARRATIVE: CASE EVENT DATE: 2015
